FAERS Safety Report 5606669-8 (Version None)
Quarter: 2008Q1

REPORT INFORMATION
  Report Type: 
  Country: None (occurrence: None)
  Receive Date: 20080129
  Receipt Date: 20080122
  Transmission Date: 20080703
  Serious: Yes (Death)
  Sender: FDA-Public Use
  Company Number: US-KINGPHARMUSA00001-K200800095

PATIENT

DRUGS (6)
  1. SKELAXIN [Suspect]
     Route: 048
  2. FENTANYL [Suspect]
     Route: 048
  3. PROMETHAZINE [Suspect]
     Route: 048
  4. SIMVASTATIN [Suspect]
     Route: 048
  5. ZOLPIDEM [Suspect]
     Route: 048
  6. UNKNOWN DRUG [Suspect]
     Route: 048

REACTIONS (2)
  - CARDIO-RESPIRATORY ARREST [None]
  - DRUG ABUSE [None]
